FAERS Safety Report 7705814-8 (Version None)
Quarter: 2011Q3

REPORT INFORMATION
  Report Type: 
  Country: None (occurrence: None)
  Receive Date: 20110824
  Receipt Date: 20110815
  Transmission Date: 20111222
  Serious: Yes (Other)
  Sender: FDA-Public Use
  Company Number: CA-ELI_LILLY_AND_COMPANY-CA201108004611

PATIENT
  Sex: Female

DRUGS (5)
  1. FLUANXOL DEPOT [Concomitant]
  2. ZYPREXA [Suspect]
     Dosage: 5 MG, QD
  3. IMOVANE [Concomitant]
  4. AMANTADINE HCL [Concomitant]
  5. BENZTROPINE MESYLATE [Concomitant]

REACTIONS (3)
  - BLOOD CHOLESTEROL INCREASED [None]
  - GLAUCOMA [None]
  - HYPERGLYCAEMIA [None]
